FAERS Safety Report 20547384 (Version 1)
Quarter: 2022Q1

REPORT INFORMATION
  Report Type: Spontaneous
  Country: US (occurrence: None)
  Receive Date: 20220303
  Receipt Date: 20220303
  Transmission Date: 20220423
  Serious: Yes (Hospitalization)
  Sender: FDA-Public Use
  Company Number: None

PATIENT
  Age: 71 Year
  Sex: Male
  Weight: 121.8 kg

DRUGS (6)
  1. NIVOLUMAB [Suspect]
     Active Substance: NIVOLUMAB
     Indication: Renal cell carcinoma
     Dates: start: 20210701
  2. CLARITIN [Concomitant]
     Active Substance: LORATADINE
  3. Norco 10 mg-325 mg [Concomitant]
  4. OMEPRAZOLE [Concomitant]
     Active Substance: OMEPRAZOLE
  5. AZITHROMYCIN [Concomitant]
     Active Substance: AZITHROMYCIN
     Dates: start: 20220204, end: 20220208
  6. PREDNISONE [Concomitant]
     Active Substance: PREDNISONE
     Dates: start: 20220204, end: 20220213

REACTIONS (9)
  - Dyspnoea [None]
  - Cough [None]
  - Nasal congestion [None]
  - Upper-airway cough syndrome [None]
  - Hypoxia [None]
  - Chronic obstructive pulmonary disease [None]
  - Pulmonary embolism [None]
  - Pneumonitis [None]
  - Deep vein thrombosis [None]

NARRATIVE: CASE EVENT DATE: 20220301
